FAERS Safety Report 8029499 (Version 6)
Quarter: 2013Q2

REPORT INFORMATION
  Report Type: Spontaneous
  Country: US (occurrence: US)
  Receive Date: 20110711
  Receipt Date: 20130620
  Transmission Date: 20140414
  Serious: Yes (Other)
  Sender: FDA-Public Use
  Company Number: US-PFIZER INC-2011154079

PATIENT
  Age: 65 Year
  Sex: Male
  Weight: 81 kg

DRUGS (5)
  1. LIPITOR [Suspect]
     Indication: PROPHYLAXIS
     Dosage: UNK, DAILY
     Route: 048
     Dates: start: 2000, end: 201101
  2. LIPITOR [Suspect]
     Indication: BLOOD CHOLESTEROL ABNORMAL
     Dosage: 75 MG, 1X/DAY
     Route: 048
  3. LIPITOR [Suspect]
     Indication: CARDIAC DISORDER
  4. LANTUS [Concomitant]
     Indication: DIABETES MELLITUS
     Dosage: 70 IU, AS NEEDED
  5. ASPIRIN [Concomitant]
     Dosage: UNK

REACTIONS (6)
  - Back pain [Not Recovered/Not Resolved]
  - Nerve injury [Not Recovered/Not Resolved]
  - Activities of daily living impaired [Unknown]
  - Insomnia [Unknown]
  - Myalgia [Not Recovered/Not Resolved]
  - Muscular weakness [Unknown]
